FAERS Safety Report 15805656 (Version 1)
Quarter: 2019Q1

REPORT INFORMATION
  Report Type: Spontaneous
  Country: US (occurrence: US)
  Receive Date: 20190110
  Receipt Date: 20190110
  Transmission Date: 20190417
  Serious: No
  Sender: FDA-Public Use
  Company Number: US-DRREDDYS-USA/USA/18/0103694

PATIENT
  Age: 54 Year
  Sex: Female
  Weight: 81.81 kg

DRUGS (4)
  1. IBUPROFEN 400,600,800 MG FILM COATED TABLETS [Suspect]
     Active Substance: IBUPROFEN
     Indication: TOOTHACHE
     Route: 065
  2. IBUPROFEN 400,600,800 MG FILM COATED TABLETS [Suspect]
     Active Substance: IBUPROFEN
     Route: 065
  3. IBUPROFEN. [Concomitant]
     Active Substance: IBUPROFEN
     Indication: TOOTHACHE
     Route: 065
  4. AMOXICILLIN. [Suspect]
     Active Substance: AMOXICILLIN
     Indication: TOOTHACHE
     Route: 065

REACTIONS (4)
  - Product use in unapproved indication [Unknown]
  - Drug ineffective [Unknown]
  - Product complaint [Unknown]
  - Headache [Unknown]
